FAERS Safety Report 5718446-8 (Version None)
Quarter: 2008Q2

REPORT INFORMATION
  Report Type: 
  Country: None (occurrence: None)
  Receive Date: 20080425
  Receipt Date: 20080417
  Transmission Date: 20081010
  Serious: Yes (Hospitalization, Other)
  Sender: FDA-Public Use
  Company Number: US-JNJFOC-20080405224

PATIENT
  Sex: Female
  Weight: 154.22 kg

DRUGS (6)
  1. TOPAMAX [Suspect]
     Indication: BIPOLAR DISORDER
     Route: 048
  2. XANAX [Concomitant]
     Indication: ANXIETY
  3. LORTAB [Concomitant]
     Indication: INTERVERTEBRAL DISC DEGENERATION
  4. DALMANE [Concomitant]
     Indication: SLEEP DISORDER
  5. LEVSIN [Concomitant]
     Indication: IRRITABLE BOWEL SYNDROME
  6. BLOOD PRESSURE MEDICATION [Concomitant]
     Indication: BLOOD PRESSURE

REACTIONS (5)
  - AMNESIA [None]
  - HYPOAESTHESIA [None]
  - PANIC ATTACK [None]
  - REPETITIVE SPEECH [None]
  - WEIGHT DECREASED [None]
